FAERS Safety Report 17837498 (Version 1)
Quarter: 2020Q2

REPORT INFORMATION
  Report Type: Report from Study
  Country: None (occurrence: AT)
  Receive Date: 20200529
  Receipt Date: 20200529
  Transmission Date: 20200714
  Serious: Yes (Other)
  Sender: FDA-Public Use
  Company Number: AT-ABBVIE-20K-009-3423022-00

PATIENT
  Age: 65 Year
  Sex: Female

DRUGS (4)
  1. L-THYROXIN [Concomitant]
     Active Substance: LEVOTHYROXINE SODIUM
     Indication: PRODUCT USED FOR UNKNOWN INDICATION
  2. HUMIRA [Suspect]
     Active Substance: ADALIMUMAB
     Indication: PSORIATIC ARTHROPATHY
     Route: 058
     Dates: start: 20200120, end: 20200427
  3. BLOPRESS [Concomitant]
     Active Substance: CANDESARTAN CILEXETIL
     Indication: PRODUCT USED FOR UNKNOWN INDICATION
  4. NOVODIGAL [Concomitant]
     Indication: PRODUCT USED FOR UNKNOWN INDICATION

REACTIONS (3)
  - Dizziness [Recovered/Resolved]
  - Swollen tongue [Recovered/Resolved]
  - Blood pressure abnormal [Recovered/Resolved]

NARRATIVE: CASE EVENT DATE: 20200527
